FAERS Safety Report 22110207 (Version 1)
Quarter: 2023Q1

REPORT INFORMATION
  Report Type: Spontaneous
  Country: US (occurrence: US)
  Receive Date: 20230317
  Receipt Date: 20230317
  Transmission Date: 20230417
  Serious: No
  Sender: FDA-Public Use
  Company Number: US-PFIZER INC-PV202300050454

PATIENT
  Age: 58 Year
  Sex: Male

DRUGS (2)
  1. XELJANZ [Suspect]
     Active Substance: TOFACITINIB CITRATE
     Indication: Rheumatoid arthritis
     Dosage: 5 MG, 2X/DAY
     Route: 048
     Dates: start: 20230207
  2. METHAMPHETAMINE [Concomitant]
     Active Substance: METHAMPHETAMINE

REACTIONS (6)
  - Malaise [Unknown]
  - Pain [Unknown]
  - Hypoaesthesia [Unknown]
  - Anxiety [Unknown]
  - Depression [Unknown]
  - Product dose omission in error [Unknown]

NARRATIVE: CASE EVENT DATE: 20230101
